FAERS Safety Report 4323342-7 (Version None)
Quarter: 2004Q1

REPORT INFORMATION
  Report Type: 
  Country: None (occurrence: None)
  Receive Date: 20040323
  Receipt Date: 20040323
  Transmission Date: 20041129
  Serious: Yes (Other)
  Sender: FDA-Public Use
  Company Number: None

PATIENT
  Age: 68 Year
  Sex: Male
  Weight: 68.9 kg

DRUGS (8)
  1. CARBOPLATIN [Suspect]
     Indication: CHEMOTHERAPY
     Dosage: 200 MG, INFUSION IV
     Route: 042
  2. DM 10/ GUAIFENSEN 100MG/5ML (ALC-F/SF)SYR [Concomitant]
  3. RABEORAZOLE NA [Concomitant]
  4. TRIAMCINOLONE [Concomitant]
  5. PEGFILGRASTIM [Concomitant]
  6. ALBUTEROL 90/ IPRATROP 18MCG [Concomitant]
  7. GEMCITABINE [Concomitant]
  8. DEXAMETHASONE [Concomitant]

REACTIONS (5)
  - CONFUSIONAL STATE [None]
  - HYPOTENSION [None]
  - SOMNOLENCE [None]
  - URTICARIA [None]
  - WHEEZING [None]
